FAERS Safety Report 16420330 (Version 1)
Quarter: 2019Q2

REPORT INFORMATION
  Report Type: Spontaneous
  Country: US (occurrence: US)
  Receive Date: 20190504
  Receipt Date: 20190504
  Transmission Date: 20190711
  Serious: Yes (Death, Life-Threatening, Hospitalization)
  Sender: FDA-Public Use
  Company Number: None

PATIENT
  Age: 79 Year
  Sex: Male
  Weight: 79.38 kg

DRUGS (12)
  1. SYMPROIC [Suspect]
     Active Substance: NALDEMEDINE
     Indication: CONSTIPATION
     Dosage: ?          QUANTITY:1 DF DOSAGE FORM;?
     Route: 048
     Dates: start: 20180329, end: 20180330
  2. ALLOPURINOL. [Suspect]
     Active Substance: ALLOPURINOL
  3. OMEPRAZOLE. [Concomitant]
     Active Substance: OMEPRAZOLE
  4. OXYCODONE [Concomitant]
     Active Substance: OXYCODONE
  5. MEMANTINE. [Suspect]
     Active Substance: MEMANTINE
  6. SOTALOL. [Concomitant]
     Active Substance: SOTALOL
  7. BABY ASPIRIN [Concomitant]
     Active Substance: ASPIRIN
  8. NORTRIPTYLINE [Concomitant]
     Active Substance: NORTRIPTYLINE
  9. NAPROXEN SODIUM. [Concomitant]
     Active Substance: NAPROXEN SODIUM
  10. VITAMIN B12 [Concomitant]
     Active Substance: CYANOCOBALAMIN
  11. DONEPEZIL. [Concomitant]
     Active Substance: DONEPEZIL
  12. QUETIAPINE. [Concomitant]
     Active Substance: QUETIAPINE

REACTIONS (9)
  - Fall [None]
  - Presyncope [None]
  - Feeding disorder [None]
  - Respiratory arrest [None]
  - Swollen tongue [None]
  - Hypotension [None]
  - Dysphagia [None]
  - Obstructive airways disorder [None]
  - Balance disorder [None]

NARRATIVE: CASE EVENT DATE: 20180330
